FAERS Safety Report 8785258 (Version 1)
Quarter: 2012Q4

REPORT INFORMATION
  Report Type: 
  Country: BR (occurrence: BR)
  Receive Date: 20120914
  Receipt Date: 20120914
  Transmission Date: 20130627
  Serious: Yes (Other)
  Sender: FDA-Public Use
  Company Number: BR-JNJFOC-20120904577

PATIENT
  Age: 1 Year
  Sex: Male
  Weight: 11 kg

DRUGS (2)
  1. TYLENOL [Suspect]
     Indication: PYREXIA
     Dosage: 1.4 ml
     Route: 048
     Dates: start: 20120905, end: 20120905
  2. DIPHTHERIA AND TETANUS TOXOIDS AND PERTUSSIS VACCINE NOS [Suspect]
     Indication: IMMUNISATION
     Route: 065

REACTIONS (3)
  - Anaphylactic shock [Recovered/Resolved]
  - Product packaging issue [Unknown]
  - Product substitution issue [None]
